FAERS Safety Report 8042404-4 (Version None)
Quarter: 2012Q1

REPORT INFORMATION
  Report Type: 
  Country: None (occurrence: None)
  Receive Date: 20120112
  Receipt Date: 20120104
  Transmission Date: 20120608
  Serious: Yes (Hospitalization)
  Sender: FDA-Public Use
  Company Number: US-NOVOPROD-342531

PATIENT

DRUGS (6)
  1. LEVEMIR [Concomitant]
     Indication: TYPE 2 DIABETES MELLITUS
     Route: 058
  2. LISINOPRIL [Concomitant]
     Indication: HYPERTENSION
     Route: 048
  3. APIDRA [Concomitant]
     Indication: TYPE 2 DIABETES MELLITUS
     Route: 058
  4. LEVOTHYROXINE SODIUM [Concomitant]
     Indication: BASEDOW'S DISEASE
     Route: 048
  5. VICTOZA [Suspect]
     Indication: TYPE 2 DIABETES MELLITUS
     Dosage: UNK
     Route: 058
     Dates: start: 20110501, end: 20111105
  6. VICTOZA [Suspect]
     Dosage: 1.8 MG, QD
     Route: 058
     Dates: end: 20111105

REACTIONS (1)
  - PANCREATITIS [None]
